FAERS Safety Report 14582033 (Version 1)
Quarter: 2018Q1

REPORT INFORMATION
  Report Type: Spontaneous
  Country: GB (occurrence: GB)
  Receive Date: 20180228
  Receipt Date: 20180228
  Transmission Date: 20180509
  Serious: Yes (Other)
  Sender: FDA-Public Use
  Company Number: GB-IBIGEN-2018.03478

PATIENT
  Age: 29 Year
  Sex: Male

DRUGS (1)
  1. PIPERACILLIN AND TAZOBACTAM [Suspect]
     Active Substance: PIPERACILLIN SODIUM\TAZOBACTAM SODIUM
     Indication: PNEUMONIA

REACTIONS (8)
  - Blood pressure decreased [Recovering/Resolving]
  - Jarisch-Herxheimer reaction [Recovering/Resolving]
  - Condition aggravated [Recovering/Resolving]
  - Haemolysis [Recovering/Resolving]
  - Shock [Recovering/Resolving]
  - Inflammatory marker increased [Recovering/Resolving]
  - Tachycardia [Recovering/Resolving]
  - Anaemia [Recovering/Resolving]
